FAERS Safety Report 15739757 (Version 2)
Quarter: 2019Q1

REPORT INFORMATION
  Report Type: Spontaneous
  Country: PL (occurrence: PL)
  Receive Date: 20181219
  Receipt Date: 20190110
  Transmission Date: 20190417
  Serious: Yes (Hospitalization, Other)
  Sender: FDA-Public Use
  Company Number: PL-ALSI-201800668

PATIENT
  Age: 76 Year
  Sex: Female

DRUGS (12)
  1. VALSARTAN. [Concomitant]
     Active Substance: VALSARTAN
  2. OXYGEN. [Suspect]
     Active Substance: OXYGEN
     Indication: INFECTIVE EXACERBATION OF CHRONIC OBSTRUCTIVE AIRWAYS DISEASE
  3. NEBIVOLOL. [Concomitant]
     Active Substance: NEBIVOLOL
  4. AMOXICILLIN; CLAVULANIC ACIDE [Suspect]
     Active Substance: AMOXICILLIN\CLAVULANIC ACID
  5. FORMOTEROL FUMARATE [Suspect]
     Active Substance: FORMOTEROL FUMARATE
  6. AMLODIPINE [Concomitant]
     Active Substance: AMLODIPINE BESYLATE
  7. OLODATEROL [Suspect]
     Active Substance: OLODATEROL
  8. TIOTROPIUM BROMIDE [Suspect]
     Active Substance: TIOTROPIUM BROMIDE
  9. IPRATROPIUM BROMIDE. [Suspect]
     Active Substance: IPRATROPIUM BROMIDE
  10. BUDESONIDE. [Suspect]
     Active Substance: BUDESONIDE
  11. SALBUTAMOL SULFATE [Suspect]
     Active Substance: ALBUTEROL SULFATE
  12. PREDNISONE. [Suspect]
     Active Substance: PREDNISONE

REACTIONS (3)
  - Dyspnoea [Not Recovered/Not Resolved]
  - Chronic obstructive pulmonary disease [Not Recovered/Not Resolved]
  - Therapeutic response decreased [Unknown]
